FAERS Safety Report 22231284 (Version 1)
Quarter: 2023Q2

REPORT INFORMATION
  Report Type: Spontaneous
  Country: US (occurrence: US)
  Receive Date: 20230420
  Receipt Date: 20230420
  Transmission Date: 20230722
  Serious: Yes (Death)
  Sender: FDA-Public Use
  Company Number: US-SUN PHARMACEUTICAL INDUSTRIES LTD-2023R1-385215

PATIENT
  Age: 78 Year
  Sex: Male

DRUGS (4)
  1. NOREPINEPHRINE [Suspect]
     Active Substance: NOREPINEPHRINE
     Indication: Haemodynamic instability
     Dosage: UNK
     Route: 065
  2. VASOPRESSIN [Suspect]
     Active Substance: VASOPRESSIN
     Indication: Haemodynamic instability
     Dosage: UNK
     Route: 065
  3. PHENYLEPHRINE [Suspect]
     Active Substance: PHENYLEPHRINE HYDROCHLORIDE
     Indication: Haemodynamic instability
     Dosage: UNK
     Route: 065
  4. CALCIUM GLUCONATE [Suspect]
     Active Substance: CALCIUM GLUCONATE
     Indication: Haemodynamic instability
     Dosage: UNK
     Route: 065

REACTIONS (1)
  - Drug ineffective [Fatal]
